FAERS Safety Report 5104519-X (Version None)
Quarter: 2006Q3

REPORT INFORMATION
  Report Type: 
  Country: None (occurrence: None)
  Receive Date: 20060911
  Receipt Date: 20060821
  Transmission Date: 20061208
  Serious: Yes (Life-Threatening, Other)
  Sender: FDA-Public Use
  Company Number: PL200609000180

PATIENT
  Age: 1 Day

DRUGS (1)
  1. DROTRECOGIN ALFA (ACTIVATED) (DROTRECOGIN ALFA (ACTIVATED) [Suspect]

REACTIONS (3)
  - CAESAREAN SECTION [None]
  - DRUG EXPOSURE DURING PREGNANCY [None]
  - PREMATURE BABY [None]
